FAERS Safety Report 22621704 (Version 1)
Quarter: 2023Q2

REPORT INFORMATION
  Report Type: Report from Study
  Country: GR (occurrence: GR)
  Receive Date: 20230620
  Receipt Date: 20230620
  Transmission Date: 20230721
  Serious: Yes (Other)
  Sender: FDA-Public Use
  Company Number: GR-ROCHE-3361235

PATIENT
  Age: 59 Year
  Sex: Male
  Weight: 70 kg

DRUGS (2)
  1. PEMETREXED [Suspect]
     Active Substance: PEMETREXED
     Indication: Neoplasm
     Dosage: DATE OF MOST RECENT DOSE OF PEMETREXED PRIOR TO AE/SAE ONSET ON 09/MAR/2023
     Route: 042
     Dates: start: 20221124, end: 20230309
  2. PEMBROLIZUMAB [Suspect]
     Active Substance: PEMBROLIZUMAB
     Indication: Neoplasm malignant
     Dosage: DATE OF MOST RECENT DOSE OF PEMBROLIZUMAB PRIOR TO AE/SAE ONSET ON 09/MAR/2023
     Route: 042
     Dates: start: 20221124

REACTIONS (1)
  - Nephropathy toxic [Not Recovered/Not Resolved]

NARRATIVE: CASE EVENT DATE: 20230330
